FAERS Safety Report 10029341 (Version 3)
Quarter: 2014Q2

REPORT INFORMATION
  Report Type: Spontaneous
  Country: JP (occurrence: JP)
  Receive Date: 20140321
  Receipt Date: 20140411
  Transmission Date: 20141212
  Serious: Yes (Hospitalization)
  Sender: FDA-Public Use
  Company Number: PHHY2014JP022486

PATIENT
  Age: 75 Year
  Sex: Male

DRUGS (3)
  1. ULTIBRO BREEZHALER [Suspect]
     Indication: EMPHYSEMA
     Route: 055
     Dates: end: 20140215
  2. ULTIBRO BREEZHALER [Suspect]
     Indication: OFF LABEL USE
  3. ONBREZ [Suspect]
     Indication: EMPHYSEMA
     Route: 055
     Dates: start: 20140216

REACTIONS (3)
  - Pneumonia bacterial [Recovered/Resolved]
  - Muscle spasms [Recovered/Resolved]
  - Influenza [Unknown]
